FAERS Safety Report 7001112-9 (Version None)
Quarter: 2010Q3

REPORT INFORMATION
  Report Type: 
  Country: None (occurrence: None)
  Receive Date: 20100920
  Receipt Date: 20100907
  Transmission Date: 20110219
  Serious: Yes (Other)
  Sender: FDA-Public Use
  Company Number: PHHY2010AR59472

PATIENT
  Sex: Female

DRUGS (1)
  1. EXFORGE [Suspect]
     Indication: BLOOD PRESSURE
     Dosage: 160/5 MG (1 TABLET DAILY)
     Dates: start: 20100827, end: 20100903

REACTIONS (2)
  - FACE OEDEMA [None]
  - TONGUE DISCOLOURATION [None]
